FAERS Safety Report 7730776-7 (Version None)
Quarter: 2011Q3

REPORT INFORMATION
  Report Type: 
  Country: None (occurrence: None)
  Receive Date: 20110906
  Receipt Date: 20110825
  Transmission Date: 20111222
  Serious: Yes (Hospitalization)
  Sender: FDA-Public Use
  Company Number: SG-ELI_LILLY_AND_COMPANY-SG201102000376

PATIENT
  Age: 30 Year
  Sex: Female

DRUGS (5)
  1. GEMZAR [Suspect]
     Indication: NASOPHARYNGEAL CANCER
     Dosage: 1000 MG/M2, UNKNOWN
     Dates: start: 20101206
  2. OMEPRAZOLE [Concomitant]
  3. CISPLATIN [Concomitant]
  4. KYTRIL [Concomitant]
  5. DEXAMETHASONE [Concomitant]

REACTIONS (2)
  - GASTRITIS [None]
  - DYSPNOEA [None]
